FAERS Safety Report 11412334 (Version 1)
Quarter: 2015Q3

REPORT INFORMATION
  Report Type: Spontaneous
  Country: US (occurrence: US)
  Receive Date: 20150824
  Receipt Date: 20150824
  Transmission Date: 20151125
  Serious: No
  Sender: FDA-Public Use
  Company Number: US-JNJFOC-20150802628

PATIENT
  Age: 58 Year
  Sex: Female
  Weight: 46.27 kg

DRUGS (4)
  1. WOMENS ROGAINE UNSCENTED [Suspect]
     Active Substance: MINOXIDIL
     Indication: ALOPECIA
     Dosage: HALF CAP, AT NIGHT
     Route: 061
     Dates: start: 20150730, end: 20150803
  2. ASPIRIN. [Concomitant]
     Active Substance: ASPIRIN
     Indication: CARDIAC DISORDER
     Route: 065
  3. HIGH BLOOD PRESSURE PILL, NOS [Concomitant]
     Indication: BLOOD PRESSURE MEASUREMENT
     Route: 065
  4. WOMENS ROGAINE UNSCENTED [Suspect]
     Active Substance: MINOXIDIL
     Route: 061

REACTIONS (5)
  - Drug administered at inappropriate site [Recovering/Resolving]
  - Skin disorder [Recovering/Resolving]
  - Drug administration error [Recovering/Resolving]
  - Pruritus [Recovering/Resolving]
  - Expired product administered [Recovering/Resolving]

NARRATIVE: CASE EVENT DATE: 20150730
